FAERS Safety Report 24175734 (Version 1)
Quarter: 2024Q3

REPORT INFORMATION
  Report Type: Spontaneous
  Country: FR (occurrence: FR)
  Receive Date: 20240805
  Receipt Date: 20240805
  Transmission Date: 20241016
  Serious: Yes (Death)
  Sender: JOHNSON AND JOHNSON
  Company Number: None

PATIENT
  Age: 66 Year
  Sex: Female
  Weight: 47.6 kg

DRUGS (7)
  1. VELCADE [Suspect]
     Active Substance: BORTEZOMIB
     Indication: Plasma cell myeloma
     Route: 058
     Dates: start: 20240601, end: 20240610
  2. DARZALEX [Suspect]
     Active Substance: DARATUMUMAB
     Indication: Plasma cell myeloma
     Route: 058
     Dates: start: 20240601, end: 20240614
  3. SODIUM BICARBONATE [Concomitant]
     Active Substance: SODIUM BICARBONATE
  4. DEXAMETHASONE [Concomitant]
     Active Substance: DEXAMETHASONE
  5. AMLODIPINE [Concomitant]
     Active Substance: AMLODIPINE BESYLATE
  6. PANTOPRAZOLE [Concomitant]
     Active Substance: PANTOPRAZOLE
  7. ALPRAZOLAM [Concomitant]
     Active Substance: ALPRAZOLAM

REACTIONS (2)
  - Thrombocytopenia [Fatal]
  - Cerebral haematoma [Fatal]

NARRATIVE: CASE EVENT DATE: 20240607
